FAERS Safety Report 17883991 (Version 1)
Quarter: 2020Q2

REPORT INFORMATION
  Report Type: Spontaneous
  Country: US (occurrence: US)
  Receive Date: 20200610
  Receipt Date: 20200610
  Transmission Date: 20200714
  Serious: Yes (Life-Threatening, Other)
  Sender: FDA-Public Use
  Company Number: None

PATIENT
  Age: 34 Year
  Sex: Female
  Weight: 54.9 kg

DRUGS (7)
  1. BENADRYL [Suspect]
     Active Substance: DIPHENHYDRAMINE HYDROCHLORIDE
  2. BCAAS NATURAL [Concomitant]
  3. CITRUCEL [Concomitant]
     Active Substance: METHYLCELLULOSE (4000 MPA.S)
  4. REGLAN [Suspect]
     Active Substance: METOCLOPRAMIDE HYDROCHLORIDE
     Indication: NAUSEA
     Route: 042
     Dates: start: 20200516, end: 20200516
  5. MULTIVITAMIN [Concomitant]
     Active Substance: VITAMINS
  6. HAIR SKIN AND NAILS GUMMIES [Concomitant]
  7. MIRALAX [Concomitant]
     Active Substance: POLYETHYLENE GLYCOL 3350

REACTIONS (17)
  - Heart rate increased [None]
  - Restlessness [None]
  - Seizure [None]
  - Dyskinesia [None]
  - Depressed mood [None]
  - Quality of life decreased [None]
  - Blood pressure increased [None]
  - Nervousness [None]
  - Depression [None]
  - Panic reaction [None]
  - Dysstasia [None]
  - Dizziness [None]
  - Anxiety [None]
  - Near death experience [None]
  - Feeling abnormal [None]
  - Dyspnoea [None]
  - Hyperacusis [None]

NARRATIVE: CASE EVENT DATE: 20200516
